FAERS Safety Report 4866591-1 (Version None)
Quarter: 2005Q4

REPORT INFORMATION
  Report Type: 
  Country: None (occurrence: None)
  Receive Date: 20051221
  Receipt Date: 20051207
  Transmission Date: 20060501
  Serious: Yes (Other)
  Sender: FDA-Public Use
  Company Number: IE-2005-026133

PATIENT
  Sex: Male

DRUGS (1)
  1. BETAFERON (INTERFERON BETA - 1B) INJECTION, 250?G [Suspect]
     Dosage: SUBCUTANEOUS
     Route: 058

REACTIONS (1)
  - TESTICULAR GERM CELL CANCER [None]
